FAERS Safety Report 23794418 (Version 1)
Quarter: 2024Q2

REPORT INFORMATION
  Report Type: Spontaneous
  Country: US (occurrence: US)
  Receive Date: 20240429
  Receipt Date: 20240429
  Transmission Date: 20240716
  Serious: Yes (Other)
  Sender: FDA-Public Use
  Company Number: US-TEVA-VS-3186718

PATIENT
  Age: 62 Year
  Sex: Male

DRUGS (1)
  1. UZEDY [Suspect]
     Active Substance: RISPERIDONE
     Indication: Product used for unknown indication
     Dosage: 50/0.14 MG/ML, STRENGTH: 125 MG / 0.35 ML
     Route: 065

REACTIONS (4)
  - Delusional disorder, unspecified type [Unknown]
  - Product supply issue [Unknown]
  - Condition aggravated [Unknown]
  - Bipolar disorder [Unknown]
